FAERS Safety Report 26102021 (Version 1)
Quarter: 2025Q4

REPORT INFORMATION
  Report Type: Spontaneous
  Country: AU (occurrence: AU)
  Receive Date: 20251128
  Receipt Date: 20251128
  Transmission Date: 20260117
  Serious: Yes (Other)
  Sender: SANDOZ
  Company Number: AU-SANDOZ-SDZ2025AU089444

PATIENT
  Age: 58 Year
  Sex: Male

DRUGS (3)
  1. DENOSUMAB [Suspect]
     Active Substance: DENOSUMAB
     Dosage: UNK (3-MONTHLY)
     Route: 065
  2. DENOSUMAB [Suspect]
     Active Substance: DENOSUMAB
     Indication: Osteoporosis
     Dosage: UNK (6-MONTHLY)
     Route: 065
  3. STRONTIUM RANELATE [Concomitant]
     Active Substance: STRONTIUM RANELATE
     Indication: Product used for unknown indication
     Dosage: UNK
     Route: 065

REACTIONS (5)
  - Pathological fracture [Recovering/Resolving]
  - Femur fracture [Recovering/Resolving]
  - Humerus fracture [Recovering/Resolving]
  - Fall [Recovering/Resolving]
  - Drug ineffective [Unknown]
